FAERS Safety Report 5324641-2 (Version None)
Quarter: 2007Q2

REPORT INFORMATION
  Report Type: 
  Country: None (occurrence: None)
  Receive Date: 20070508
  Receipt Date: 20070424
  Transmission Date: 20071010
  Serious: Yes (Life-Threatening)
  Sender: FDA-Public Use
  Company Number: 155681ISR

PATIENT
  Sex: Female

DRUGS (1)
  1. MESALAZINE [Suspect]

REACTIONS (2)
  - ERYTHRODERMIC PSORIASIS [None]
  - HYPERSENSITIVITY [None]
